FAERS Safety Report 10703535 (Version 7)
Quarter: 2016Q4

REPORT INFORMATION
  Report Type: Report from Study
  Country: CA (occurrence: CA)
  Receive Date: 20150112
  Receipt Date: 20161101
  Transmission Date: 20170206
  Serious: Yes (Other)
  Sender: FDA-Public Use
  Company Number: PHHY2014CA121102

PATIENT
  Age: 66 Year
  Sex: Female

DRUGS (2)
  1. SANDOSTATIN LAR DEPOT [Suspect]
     Active Substance: OCTREOTIDE ACETATE
     Indication: NEUROENDOCRINE TUMOUR
     Dosage: 20 MG, QMO (EVERY FOUR WEEKS )
     Route: 030
     Dates: start: 20140618
  2. SANDOSTATIN [Suspect]
     Active Substance: OCTREOTIDE ACETATE
     Indication: NEUROENDOCRINE TUMOUR
     Dosage: 200 UG, TID (FOR 10 DAYS)
     Route: 058
     Dates: start: 20140611, end: 20140620

REACTIONS (29)
  - Road traffic accident [Unknown]
  - Diarrhoea [Unknown]
  - Flushing [Unknown]
  - Blood pressure increased [Unknown]
  - Blood pressure systolic increased [Unknown]
  - Neoplasm progression [Unknown]
  - Contusion [Unknown]
  - Hypersomnia [Unknown]
  - Injection site pain [Recovered/Resolved]
  - Abdominal distension [Unknown]
  - Malignant neoplasm progression [Unknown]
  - Myalgia [Unknown]
  - Lacrimation increased [Unknown]
  - Pain [Unknown]
  - Nausea [Unknown]
  - Fatigue [Unknown]
  - Flatulence [Unknown]
  - Needle issue [Unknown]
  - Mass [Unknown]
  - Red blood cell count decreased [Unknown]
  - Stress [Unknown]
  - Feeling hot [Unknown]
  - Musculoskeletal pain [Unknown]
  - Bone pain [Unknown]
  - Anxiety [Unknown]
  - Feeling cold [Unknown]
  - Muscle spasms [Unknown]
  - Vomiting [Unknown]
  - Metastases to liver [Unknown]

NARRATIVE: CASE EVENT DATE: 2014
